FAERS Safety Report 15485610 (Version 3)
Quarter: 2018Q4

REPORT INFORMATION
  Report Type: Spontaneous
  Country: US (occurrence: US)
  Receive Date: 20181010
  Receipt Date: 20181121
  Transmission Date: 20190205
  Serious: Yes (Death, Life-Threatening, Hospitalization, Other)
  Sender: FDA-Public Use
  Company Number: US-ADAPT PHARMA INC-2018ADP00072

PATIENT
  Age: 69 Year
  Sex: Male

DRUGS (6)
  1. NARCAN [Suspect]
     Active Substance: NALOXONE HYDROCHLORIDE
     Indication: OVERDOSE
     Dosage: 4 MG, ONCE
     Route: 045
     Dates: start: 20180913, end: 20180913
  2. OPANA [Suspect]
     Active Substance: OXYMORPHONE HYDROCHLORIDE
     Dosage: UNK UNK, ONCE
     Route: 065
     Dates: start: 20180912, end: 20180912
  3. NALOXONE HYDROCHLORIDE. [Suspect]
     Active Substance: NALOXONE HYDROCHLORIDE
     Indication: OVERDOSE
     Dosage: UNK, ONCE
     Route: 065
     Dates: start: 20180913, end: 20180913
  4. XANAX [Suspect]
     Active Substance: ALPRAZOLAM
     Dosage: UNK, UNK
     Route: 065
  5. UNSPECIFIED ALCOHOL [Suspect]
     Active Substance: ALCOHOL
     Dosage: UNK, UNK
     Route: 048
  6. UNSPECIFIED PRESCRIPTION MEDICATION [Suspect]
     Active Substance: UNSPECIFIED INGREDIENT
     Dosage: UNK, UNK
     Route: 065

REACTIONS (5)
  - Cyanosis [Unknown]
  - Anxiety [Unknown]
  - Wrong technique in product usage process [Recovered/Resolved]
  - Pneumonia aspiration [Unknown]
  - Acute respiratory distress syndrome [Fatal]

NARRATIVE: CASE EVENT DATE: 20180913
